FAERS Safety Report 14238627 (Version 1)
Quarter: 2017Q4

REPORT INFORMATION
  Report Type: Spontaneous
  Country: US (occurrence: None)
  Receive Date: 20171129
  Receipt Date: 20171129
  Transmission Date: 20180321
  Serious: Yes (Hospitalization)
  Sender: FDA-Public Use
  Company Number: None

PATIENT
  Age: 63 Year
  Sex: Female
  Weight: 81.7 kg

DRUGS (2)
  1. ETOPOSIDE (VP-16) [Suspect]
     Active Substance: ETOPOSIDE
     Dates: end: 20171001
  2. CISPLATIN. [Suspect]
     Active Substance: CISPLATIN
     Dates: end: 20171011

REACTIONS (6)
  - Febrile neutropenia [None]
  - Thrombocytopenia [None]
  - Hyperglycaemia [None]
  - Hypokalaemia [None]
  - Oesophagitis [None]
  - Hypertension [None]

NARRATIVE: CASE EVENT DATE: 20171015
